FAERS Safety Report 13390253 (Version 5)
Quarter: 2018Q4

REPORT INFORMATION
  Report Type: Report from Study
  Country: ZA (occurrence: ZA)
  Receive Date: 20170331
  Receipt Date: 20181213
  Transmission Date: 20190204
  Serious: Yes (Other)
  Sender: FDA-Public Use
  Company Number: PHHY2017ZA046013

PATIENT
  Sex: Male
  Weight: 84 kg

DRUGS (2)
  1. DESFERAL [Suspect]
     Active Substance: DEFEROXAMINE MESYLATE
     Dosage: 2500 MG, UNK
     Route: 065
     Dates: start: 20180301
  2. DESFERAL [Suspect]
     Active Substance: DEFEROXAMINE MESYLATE
     Indication: THALASSAEMIA
     Dosage: 8 VIALS FIVE DAYS A WEEK
     Route: 065
     Dates: start: 1995

REACTIONS (1)
  - Diabetes mellitus [Unknown]

NARRATIVE: CASE EVENT DATE: 2008
